FAERS Safety Report 24104033 (Version 2)
Quarter: 2025Q1

REPORT INFORMATION
  Report Type: Spontaneous
  Country: GB (occurrence: GB)
  Receive Date: 20240717
  Receipt Date: 20250329
  Transmission Date: 20250409
  Serious: Yes (Death, Life-Threatening, Hospitalization, Disabling, Other)
  Sender: ACCORD
  Company Number: None

PATIENT
  Age: 32 Year
  Sex: Female

DRUGS (1)
  1. ESOMEPRAZOLE [Suspect]
     Active Substance: ESOMEPRAZOLE
     Indication: Diarrhoea

REACTIONS (4)
  - Arrhythmia [Fatal]
  - Cardiac arrest [Fatal]
  - Brain hypoxia [Not Recovered/Not Resolved]
  - Product use in unapproved indication [Unknown]
